FAERS Safety Report 10392011 (Version 2)
Quarter: 2014Q3

REPORT INFORMATION
  Report Type: Spontaneous
  Country: JP (occurrence: JP)
  Receive Date: 20140819
  Receipt Date: 20140923
  Transmission Date: 20150326
  Serious: Yes (Other)
  Sender: FDA-Public Use
  Company Number: PHHY2014JP099444

PATIENT

DRUGS (4)
  1. GLIVEC [Suspect]
     Active Substance: IMATINIB MESYLATE
     Indication: ACUTE LYMPHOCYTIC LEUKAEMIA
     Dosage: 600 MG, DAILY
     Route: 048
  2. LEUNASE [Concomitant]
     Active Substance: ASPARAGINASE
     Dosage: UNK UKN, UNK
     Route: 058
  3. ACICLOVIR [Concomitant]
     Active Substance: ACYCLOVIR
     Dosage: UNK UKN, UNK
     Route: 062
  4. GLIVEC [Suspect]
     Active Substance: IMATINIB MESYLATE
     Indication: OFF LABEL USE
     Dosage: 500 TO 600MG FOR ABOUT 1 MONTH
     Route: 048

REACTIONS (6)
  - Decreased appetite [Unknown]
  - Nausea [Recovering/Resolving]
  - Diarrhoea [Unknown]
  - Abdominal pain [Unknown]
  - Weight decreased [Recovered/Resolved]
  - Meningitis [Recovered/Resolved]
